FAERS Safety Report 4575558-2 (Version None)
Quarter: 2005Q1

REPORT INFORMATION
  Report Type: 
  Country: None (occurrence: None)
  Receive Date: 20050209
  Receipt Date: 20050126
  Transmission Date: 20050727
  Serious: No
  Sender: FDA-Public Use
  Company Number: JP-BRISTOL-MYERS SQUIBB COMPANY-12840906

PATIENT
  Age: 56 Year
  Sex: Male

DRUGS (2)
  1. BRIPLATIN [Suspect]
     Indication: NASAL SINUS CANCER
     Route: 013
     Dates: start: 19961030, end: 19961030
  2. SODIUM THIOSULFATE [Concomitant]
     Route: 041
     Dates: start: 19961030, end: 19961030

REACTIONS (2)
  - ERYTHEMA [None]
  - FACE OEDEMA [None]
